FAERS Safety Report 5873751-X (Version None)
Quarter: 2008Q3

REPORT INFORMATION
  Report Type: 
  Country: None (occurrence: None)
  Receive Date: 20080903
  Receipt Date: 20080827
  Transmission Date: 20090109
  Serious: Yes (Death, Hospitalization)
  Sender: FDA-Public Use
  Company Number: 2008-03166

PATIENT
  Age: 67 Year
  Sex: Male

DRUGS (1)
  1. VELCADE [Suspect]
     Indication: MULTIPLE MYELOMA
     Dates: start: 20080401, end: 20080801

REACTIONS (2)
  - DISEASE PROGRESSION [None]
  - THROMBOCYTOPENIA [None]
